FAERS Safety Report 4785010-7 (Version None)
Quarter: 2005Q3

REPORT INFORMATION
  Report Type: 
  Country: None (occurrence: None)
  Receive Date: 20050928
  Receipt Date: 20050913
  Transmission Date: 20060218
  Serious: Yes (Other)
  Sender: FDA-Public Use
  Company Number: USA0509108043

PATIENT
  Age: 84 Year
  Sex: Female

DRUGS (11)
  1. FORTEO [Suspect]
     Dates: start: 20040401
  2. ARAVA [Concomitant]
  3. SYNTHROID [Concomitant]
  4. FLUTICASONE W/SALMETEROL [Concomitant]
  5. AVANDIA [Concomitant]
  6. ZOCOR [Concomitant]
  7. CLONAZEPAM [Concomitant]
  8. LASIX [Concomitant]
  9. KLOR-CON [Concomitant]
  10. MULTIVITAMIN [Concomitant]
  11. CALCIUM + VITAMIN D [Concomitant]

REACTIONS (2)
  - LUNG NEOPLASM MALIGNANT [None]
  - PHARMACEUTICAL PRODUCT COMPLAINT [None]
